FAERS Safety Report 23450649 (Version 3)
Quarter: 2024Q1

REPORT INFORMATION
  Report Type: Spontaneous
  Country: DE (occurrence: DE)
  Receive Date: 20240129
  Receipt Date: 20240220
  Transmission Date: 20240409
  Serious: Yes (Other)
  Sender: FDA-Public Use
  Company Number: DE-002147023-NVSC2024DE016820

PATIENT
  Age: 10 Year
  Sex: Male

DRUGS (2)
  1. CARBAMAZEPINE [Suspect]
     Active Substance: CARBAMAZEPINE
     Indication: Ataxia
     Dosage: UNK
     Route: 065
  2. ACETAZOLAMIDE [Suspect]
     Active Substance: ACETAZOLAMIDE
     Indication: Ataxia
     Dosage: UNK
     Route: 065

REACTIONS (3)
  - Hereditary ataxia [Unknown]
  - Condition aggravated [Unknown]
  - Product use in unapproved indication [Unknown]
